FAERS Safety Report 9735776 (Version 2)
Quarter: 2015Q3

REPORT INFORMATION
  Report Type: Spontaneous
  Country: US (occurrence: US)
  Receive Date: 20131206
  Receipt Date: 20150804
  Transmission Date: 20151125
  Serious: No
  Sender: FDA-Public Use
  Company Number: US-GILEAD-2009-0023088

PATIENT
  Age: 62 Year
  Sex: Female
  Weight: 56.7 kg

DRUGS (8)
  1. BENADRYL [Concomitant]
     Active Substance: DIPHENHYDRAMINE HYDROCHLORIDE
  2. LETAIRIS [Suspect]
     Active Substance: AMBRISENTAN
     Indication: PULMONARY ARTERIAL HYPERTENSION
     Route: 048
     Dates: start: 20090427
  3. VITAMIN B-100 [Concomitant]
  4. WARFARIN [Concomitant]
     Active Substance: WARFARIN
  5. REMODULIN [Concomitant]
     Active Substance: TREPROSTINIL
  6. BL CALCIUM [Concomitant]
  7. MAGNESIUM [Concomitant]
     Active Substance: MAGNESIUM
  8. LASIX [Concomitant]
     Active Substance: FUROSEMIDE

REACTIONS (1)
  - Nasal congestion [Unknown]
